FAERS Safety Report 8798279 (Version 1)
Quarter: 2012Q4

REPORT INFORMATION
  Report Type: Report from Study
  Country: CO (occurrence: CO)
  Receive Date: 20120920
  Receipt Date: 20120920
  Transmission Date: 20130627
  Serious: Yes (Death, Other)
  Sender: FDA-Public Use
  Company Number: CO-PFIZER INC-2007089561

PATIENT
  Age: 61 Year
  Sex: Female

DRUGS (8)
  1. LIPITOR [Suspect]
     Indication: HYPERLIPIDAEMIA
     Dosage: 20 mg, 1x/day
     Route: 048
     Dates: start: 200403, end: 20071014
  2. LIPITOR [Suspect]
     Dosage: 10 mg, 1x/day
  3. ACURETIC [Suspect]
     Indication: HYPERTENSION
     Dosage: UNK mg, 1x/day
     Route: 048
     Dates: start: 200403, end: 20071014
  4. ACURETIC [Suspect]
     Dosage: 20 mg/125 mg, 1x/day
  5. FUROSEMIDE [Concomitant]
  6. ESPIRONOLACTONA [Concomitant]
  7. ESPIRONOLACTONA [Concomitant]
     Dosage: 25 mg, 1x/day
  8. LOSARTAN [Concomitant]

REACTIONS (6)
  - Cerebral haemorrhage [Fatal]
  - Nausea [Unknown]
  - Vomiting [Unknown]
  - Generalised oedema [Unknown]
  - Dyspnoea [Unknown]
  - Palpitations [Unknown]
